FAERS Safety Report 5675278-7 (Version None)
Quarter: 2008Q1

REPORT INFORMATION
  Report Type: 
  Country: None (occurrence: None)
  Receive Date: 20080320
  Receipt Date: 20080310
  Transmission Date: 20080703
  Serious: Yes (Death, Other)
  Sender: FDA-Public Use
  Company Number: US-ELI_LILLY_AND_COMPANY-US200801003170

PATIENT
  Age: 76 Year
  Sex: Male

DRUGS (11)
  1. CYMBALTA [Suspect]
     Indication: DEPRESSION
     Dosage: 60 MG, DAILY (1/D)
     Dates: start: 20050101
  2. TRAZODONE HCL [Concomitant]
  3. SENNOSIDE [Concomitant]
  4. METOPROLOL TARTRATE [Concomitant]
  5. OXYBUTYNIN CHLORIDE [Concomitant]
  6. INSULIN [Concomitant]
  7. HYDROXYUREA [Concomitant]
  8. HYDROCHLOROTHIAZIDE [Concomitant]
  9. LASIX [Concomitant]
  10. DIGOXIN [Concomitant]
  11. ARIPIPRAZOLE [Concomitant]

REACTIONS (3)
  - DISABILITY [None]
  - DYSPHAGIA [None]
  - REFUSAL OF TREATMENT BY PATIENT [None]
